FAERS Safety Report 10040244 (Version 1)
Quarter: 2014Q1

REPORT INFORMATION
  Report Type: Spontaneous
  Country: ES (occurrence: ES)
  Receive Date: 20140327
  Receipt Date: 20140327
  Transmission Date: 20141002
  Serious: Yes (Other)
  Sender: FDA-Public Use
  Company Number: ES-009507513-1403ESP011869

PATIENT
  Age: 50 Year
  Sex: 0

DRUGS (3)
  1. REBETOL [Suspect]
     Indication: HEPATITIS C
     Dosage: 1200MG/24H
     Route: 048
     Dates: start: 20130316, end: 20140117
  2. INCIVEK [Suspect]
     Indication: HEPATITIS C
     Dosage: 2250MG/24H
     Route: 048
     Dates: start: 20130316, end: 20130607
  3. PEGASYS [Suspect]
     Indication: HEPATITIS C
     Dosage: 180MCG/SEMANA
     Route: 058
     Dates: start: 20130316, end: 20140117

REACTIONS (1)
  - Pancreatic carcinoma [Unknown]
